FAERS Safety Report 11107093 (Version 1)
Quarter: 2015Q2

REPORT INFORMATION
  Report Type: Spontaneous
  Country: FR (occurrence: None)
  Receive Date: 20150508
  Receipt Date: 20150508
  Transmission Date: 20150821
  Serious: Yes (Hospitalization)
  Sender: FDA-Public Use
  Company Number: 2015COR00087

PATIENT
  Age: 79 Year
  Sex: Female

DRUGS (2)
  1. DOXYCYCLINE (DOXYCYCLINE) UNKNOWN [Suspect]
     Active Substance: DOXYCYCLINE
     Indication: RASH PUSTULAR
     Dosage: UNK UNK, 1X/DAY
     Dates: start: 20140715
  2. ERLOTINIB [Concomitant]
     Active Substance: ERLOTINIB

REACTIONS (1)
  - Pancreatitis [None]

NARRATIVE: CASE EVENT DATE: 20140803
